FAERS Safety Report 17203476 (Version 1)
Quarter: 2019Q4

REPORT INFORMATION
  Report Type: Spontaneous
  Country: FR (occurrence: FR)
  Receive Date: 20191226
  Receipt Date: 20191226
  Transmission Date: 20200122
  Serious: Yes (Other)
  Sender: FDA-Public Use
  Company Number: FR-MYLANLABS-2019M1126639

PATIENT
  Sex: Female
  Weight: 77 kg

DRUGS (32)
  1. GLICLAZIDE [Suspect]
     Active Substance: GLICLAZIDE
     Indication: TYPE 2 DIABETES MELLITUS
     Dosage: 120 MG, ONCE DAILY (QD)
     Dates: start: 20160930, end: 20170224
  2. NICOPATCH [Suspect]
     Active Substance: NICOTINE
     Dosage: UNK
  3. FORLAX [Suspect]
     Active Substance: POLYETHYLENE GLYCOL 4000
     Indication: NORMOCHROMIC NORMOCYTIC ANAEMIA
     Dosage: UNK
  4. LABETALOL HCL [Suspect]
     Active Substance: LABETALOL HYDROCHLORIDE
     Indication: HYPERTENSION
     Dosage: 80 MG, ONCE DAILY (QD)
     Dates: start: 20170516
  5. HUMALOG [Suspect]
     Active Substance: INSULIN LISPRO
     Indication: TYPE 2 DIABETES MELLITUS
     Dosage: 21 ?G/M2, ONCE DAILY (QD)
     Dates: start: 20170224, end: 20170224
  6. LOXEN                              /00639802/ [Suspect]
     Active Substance: NICARDIPINE HYDROCHLORIDE
     Indication: HYPERTENSION
     Dosage: 50 MG, UNK
     Dates: start: 20170313, end: 20170405
  7. LAROXYL [Suspect]
     Active Substance: AMITRIPTYLINE HYDROCHLORIDE
     Dosage: UNK
  8. RAMIPRIL. [Suspect]
     Active Substance: RAMIPRIL
     Indication: HYPERTENSION
     Dosage: 2.5 MG, ONCE DAILY (QD)
     Route: 048
     Dates: start: 20160930, end: 20170224
  9. METFORMIN [Suspect]
     Active Substance: METFORMIN HYDROCHLORIDE
     Indication: TYPE 2 DIABETES MELLITUS
     Dosage: 850 MG, ONCE DAILY (QD)
     Route: 048
     Dates: start: 20170224
  10. LARGACTIL                          /00011902/ [Suspect]
     Active Substance: CHLORPROMAZINE HYDROCHLORIDE
     Indication: BIPOLAR I DISORDER
     Dosage: 25 MG, ONCE DAILY (QD)
     Dates: start: 20170720
  11. NICOPATCH [Suspect]
     Active Substance: NICOTINE
     Indication: EX-TOBACCO USER
     Dosage: 7 MG, ONCE DAILY (QD)
     Dates: start: 20170224, end: 20170516
  12. LASIX [Suspect]
     Active Substance: FUROSEMIDE
     Indication: HYPERTENSION
     Dosage: 50 MG, UNK
  13. INSULINE                           /01223401/ [Suspect]
     Active Substance: INSULIN NOS
     Dosage: 21 MICROGRAM/SQ. METER, QD
  14. RAMIPRIL. [Suspect]
     Active Substance: RAMIPRIL
     Dosage: 2.5 MG, ONCE DAILY (QD)
     Route: 048
     Dates: start: 20170224
  15. METFORMIN [Suspect]
     Active Substance: METFORMIN HYDROCHLORIDE
     Dosage: 1700 MILLIGRAM, QD
     Route: 048
     Dates: start: 20160930, end: 20170224
  16. METHYLDOPA MSD [Suspect]
     Active Substance: METHYLDOPA
     Indication: HYPERTENSION
     Dosage: 15000 MG, ONCE DAILY (QD)
     Route: 048
     Dates: start: 20170720
  17. FOLINIC ACID [Suspect]
     Active Substance: LEUCOVORIN
     Indication: NORMOCHROMIC NORMOCYTIC ANAEMIA
     Dosage: 5 MG, ONCE DAILY (QD)
     Dates: start: 20170224, end: 20170313
  18. LAROXYL [Suspect]
     Active Substance: AMITRIPTYLINE HYDROCHLORIDE
     Indication: DIABETIC NEUROPATHY
     Dosage: 2 DF, ONCE DAILY (QD)
     Dates: start: 20160930
  19. NICARDIPINE                        /00639802/ [Suspect]
     Active Substance: NICARDIPINE HYDROCHLORIDE
     Dosage: 50 MG, 2X/DAY (BID)
     Dates: start: 20170405
  20. TARDYFERON [Suspect]
     Active Substance: FERROUS SULFATE
     Indication: NORMOCHROMIC NORMOCYTIC ANAEMIA
     Dosage: 1 DF, ONCE DAILY (QD)
     Dates: start: 20170313
  21. ACIDE FOLIQUE [Suspect]
     Active Substance: FOLIC ACID
     Indication: NORMOCHROMIC NORMOCYTIC ANAEMIA
     Dosage: 5 MG, ONCE DAILY (QD)
     Dates: start: 20170224
  22. TRAMADOL. [Suspect]
     Active Substance: TRAMADOL
     Indication: DIABETIC NEUROPATHY
     Dosage: 50 MG, ONCE DAILY (QD)
     Dates: start: 20160930, end: 20170306
  23. GABAPENTIN. [Suspect]
     Active Substance: GABAPENTIN
     Indication: DIABETIC NEUROPATHY
     Dosage: 80 MG, ONCE DAILY (QD)
     Route: 048
     Dates: start: 20160930
  24. AMOXICILLIN. [Suspect]
     Active Substance: AMOXICILLIN
     Indication: PRODUCT USED FOR UNKNOWN INDICATION
     Dosage: 3 G, ONCE DAILY (QD)
     Route: 048
     Dates: start: 20170804, end: 20170811
  25. FORLAX [Suspect]
     Active Substance: POLYETHYLENE GLYCOL 4000
     Indication: CONSTIPATION
     Dosage: 1 DF, ONCE DAILY (QD)
     Dates: start: 20160930, end: 20170405
  26. ACIDE FOLIQUE [Suspect]
     Active Substance: FOLIC ACID
     Dosage: 5 MG, ONCE DAILY (QD)
     Dates: start: 20170313
  27. INSULINE                           /01223401/ [Suspect]
     Active Substance: INSULIN NOS
     Indication: TYPE 2 DIABETES MELLITUS
     Dosage: UNK
     Dates: start: 20161230, end: 20170224
  28. ARIPIPRAZOLE. [Suspect]
     Active Substance: ARIPIPRAZOLE
     Indication: BIPOLAR I DISORDER
     Dosage: 10 MG, ONCE DAILY (QD)
     Dates: start: 20160930, end: 20170224
  29. LEVEMIR [Suspect]
     Active Substance: INSULIN DETEMIR
     Indication: TYPE 2 DIABETES MELLITUS
     Dosage: 10 IU, ONCE DAILY (QD)
     Dates: start: 20160930, end: 20170224
  30. NICARDIPINE                        /00639802/ [Suspect]
     Active Substance: NICARDIPINE HYDROCHLORIDE
     Indication: HYPERTENSION
     Dosage: 100 MG, ONCE DAILY (QD)
     Dates: start: 20180405
  31. DIFFU-K [Suspect]
     Active Substance: POTASSIUM CHLORIDE
     Indication: HYPOKALAEMIA
     Dosage: 3600 MG
     Dates: start: 20170804
  32. LANTUS [Suspect]
     Active Substance: INSULIN GLARGINE
     Indication: TYPE 2 DIABETES MELLITUS
     Dosage: 20 MG, ONCE DAILY (QD)
     Dates: start: 20170224

REACTIONS (2)
  - Maternal exposure during pregnancy [Recovered/Resolved]
  - Premature delivery [Recovered/Resolved]

NARRATIVE: CASE EVENT DATE: 20170804
